FAERS Safety Report 6615382-X (Version None)
Quarter: 2010Q1

REPORT INFORMATION
  Report Type: 
  Country: None (occurrence: None)
  Receive Date: 20100305
  Receipt Date: 20091231
  Transmission Date: 20100710
  Serious: No
  Sender: FDA-Public Use
  Company Number: A0809326A

PATIENT
  Age: 53 Year
  Sex: Male

DRUGS (9)
  1. REQUIP [Suspect]
     Indication: RESTLESS LEGS SYNDROME
     Dosage: .5MG PER DAY
     Route: 048
     Dates: start: 20050101
  2. LOVASTATIN [Concomitant]
  3. LEVOTHYROXINE SODIUM [Concomitant]
  4. CARVEDILOL [Concomitant]
  5. MECLIZINE [Concomitant]
  6. LISINOPRIL [Concomitant]
  7. CLONIDINE [Concomitant]
  8. NITROSTAT [Concomitant]
  9. ASPIRIN [Concomitant]

REACTIONS (4)
  - DYSARTHRIA [None]
  - RASH ERYTHEMATOUS [None]
  - SEDATION [None]
  - SENSATION OF HEAVINESS [None]
